FAERS Safety Report 24196861 (Version 3)
Quarter: 2024Q3

REPORT INFORMATION
  Report Type: Spontaneous
  Country: CA (occurrence: CA)
  Receive Date: 20240810
  Receipt Date: 20240820
  Transmission Date: 20241017
  Serious: No
  Sender: CELLTRION
  Company Number: CA-CELLTRION INC.-2024CA018709

PATIENT

DRUGS (5)
  1. YUFLYMA [Suspect]
     Active Substance: ADALIMUMAB-AATY
     Dosage: 40 MG, Q2WEEKS
     Route: 058
     Dates: start: 20240605
  2. YUFLYMA [Suspect]
     Active Substance: ADALIMUMAB-AATY
     Dosage: 40 MG, Q2WEEKS
     Route: 058
     Dates: start: 20240731
  3. TYLENOL [Concomitant]
     Active Substance: ACETAMINOPHEN
     Dosage: AS NEEDED
  4. VITAMINS NOS [Concomitant]
     Active Substance: VITAMINS
     Indication: Prenatal care
  5. VITAMIN D NOS [Concomitant]
     Active Substance: CHOLECALCIFEROL\ERGOCALCIFEROL
     Dosage: DROPS

REACTIONS (1)
  - Therapeutic product effect incomplete [Not Recovered/Not Resolved]
